FAERS Safety Report 16073534 (Version 1)
Quarter: 2019Q1

REPORT INFORMATION
  Report Type: Spontaneous
  Country: SE (occurrence: SE)
  Receive Date: 20190314
  Receipt Date: 20190314
  Transmission Date: 20190418
  Serious: Yes (Hospitalization)
  Sender: FDA-Public Use
  Company Number: SE-MYLANLABS-2019M1023523

PATIENT
  Sex: Male

DRUGS (1)
  1. ERY-MAX [Suspect]
     Active Substance: ERYTHROMYCIN
     Indication: PERTUSSIS
     Dosage: 2 MILLILITER, QD
     Route: 065
     Dates: start: 20180704, end: 20180714

REACTIONS (1)
  - Pyloric stenosis [Recovered/Resolved]

NARRATIVE: CASE EVENT DATE: 20180715
